FAERS Safety Report 8255253-9 (Version None)
Quarter: 2012Q2

REPORT INFORMATION
  Report Type: 
  Country: None (occurrence: None)
  Receive Date: 20120403
  Receipt Date: 20120329
  Transmission Date: 20120825
  Serious: Yes (Hospitalization)
  Sender: FDA-Public Use
  Company Number: ZA-NOVOPROD-348455

PATIENT
  Age: 58 Year
  Sex: Male

DRUGS (8)
  1. VICTOZA [Suspect]
     Indication: TYPE 2 DIABETES MELLITUS
     Dosage: 1.2 MG, QD
     Route: 058
  2. LASIX [Concomitant]
     Dosage: 40 MG, QD
     Route: 048
  3. PLAVIX [Concomitant]
     Dosage: UNKNOWN
  4. ASPIRIN [Concomitant]
     Dosage: 81 MG, QD
     Route: 048
  5. FENOFIBRATE [Concomitant]
     Dosage: 200 MG, QD
     Route: 048
  6. GLUCOPHAGE [Concomitant]
     Dosage: 2.5 MG, QD
     Route: 048
  7. HUMALOG [Concomitant]
     Dosage: 40-50 UNITS, TID
     Route: 058
  8. PURICOS [Concomitant]
     Dosage: 600 MG, QD
     Route: 048

REACTIONS (1)
  - CORONARY ARTERY DISEASE [None]
